FAERS Safety Report 4422348-7 (Version None)
Quarter: 2004Q3

REPORT INFORMATION
  Report Type: 
  Country: None (occurrence: None)
  Receive Date: 20040810
  Receipt Date: 20040730
  Transmission Date: 20050211
  Serious: Yes (Hospitalization)
  Sender: FDA-Public Use
  Company Number: US-BRISTOL-MYERS SQUIBB COMPANY-12657052

PATIENT
  Age: 71 Year
  Sex: Male
  Weight: 104 kg

DRUGS (26)
  1. COUMADIN [Suspect]
     Indication: CORONARY ANGIOPLASTY
     Dosage: 1985-2000(DATE/DOSE UNK); 6/25/04+6/26=10MG/D; 6/27=7.5MG/D; THEN 47.5/WK;7/15=10MG ALTER W/7.5MG/D
     Route: 048
     Dates: start: 19850101
  2. PLAVIX [Suspect]
     Dosage: SWITCHED FROM ASPIRIN OVER 1 YEAR AGO
     Route: 048
     Dates: start: 20030101, end: 20040601
  3. ASPIRIN [Suspect]
     Indication: CORONARY ANGIOPLASTY
     Dosage: 1985-2000; 2000 WAS RECEIVING 81 MG; STOPPED IN JUN-2004 UPON ADMISSION; RESTARTED 26JUN04
     Dates: start: 19850101, end: 20040601
  4. CORGARD [Concomitant]
     Dosage: FOR A LONG TIME
  5. NORVASC [Concomitant]
     Dosage: CHANGED TO FELODIPINE
     Dates: end: 20040701
  6. FELODIPINE [Concomitant]
     Dosage: CHANGED FROM NORVASC 3 WEEKS AGO
     Dates: start: 20040701
  7. IRBESARTAN [Concomitant]
     Dosage: SWITCHED FROM DIOVAN 3 WEEKS AGO
     Dates: start: 20030701
  8. DIOVAN [Concomitant]
     Dates: end: 20040701
  9. ALLEGRA [Concomitant]
  10. DONEPEZIL HCL [Concomitant]
     Dates: start: 20000101
  11. LIPITOR [Concomitant]
     Dosage: 2-3 YRS
  12. NIASPAN [Concomitant]
     Dosage: OVER 2 YRS
  13. STARLIX [Concomitant]
     Dosage: 2 OR 3 TABS PER DAY, OVER 1 YR
  14. LANTUS [Concomitant]
     Dosage: 43 UNITS AT BEDTIME; OVER 1 YR
  15. NOVOLOG [Concomitant]
     Dosage: OVER 1 YR
  16. VITAMIN C [Concomitant]
     Dosage: FOR YEARS
  17. MULTI-VITAMIN [Concomitant]
     Dosage: 1 TAB DAILY FOR YEARS
     Route: 048
  18. FISH OIL [Concomitant]
     Dosage: 2 SOFT-GELS DAILY, OVER 1 YR
  19. FOLIC ACID [Concomitant]
  20. COLACE [Concomitant]
     Dosage: FOR OVER A YR
  21. FLAXSEED OIL [Concomitant]
     Dosage: 1 SOFT-GEL DAILY
  22. METHSUXIMIDE [Concomitant]
     Dosage: FOR YRS
  23. CHONDROITIN [Concomitant]
     Dosage: FOR YEARS
  24. GLUCOSAMINE [Concomitant]
     Dosage: FOR YEARS
  25. CO-Q-10 PLUS [Concomitant]
  26. METAMUCIL-2 [Concomitant]
     Dosage: 1 TSP TWICE A DAY FOR YRS

REACTIONS (2)
  - INTERNATIONAL NORMALISED RATIO ABNORMAL [None]
  - MYOCARDIAL INFARCTION [None]
